FAERS Safety Report 17239066 (Version 1)
Quarter: 2020Q1

REPORT INFORMATION
  Report Type: Spontaneous
  Country: US (occurrence: US)
  Receive Date: 20200106
  Receipt Date: 20200106
  Transmission Date: 20200409
  Serious: Yes (Hospitalization)
  Sender: FDA-Public Use
  Company Number: US-ABBVIE-19K-163-2866127-00

PATIENT
  Sex: Male

DRUGS (2)
  1. ACALABRUTINIB. [Concomitant]
     Active Substance: ACALABRUTINIB
     Indication: MANTLE CELL LYMPHOMA
  2. VENETOCLAX. [Suspect]
     Active Substance: VENETOCLAX
     Indication: MANTLE CELL LYMPHOMA
     Route: 048

REACTIONS (1)
  - Tumour lysis syndrome [Unknown]
